FAERS Safety Report 9733285 (Version 1)
Quarter: 2013Q4

REPORT INFORMATION
  Report Type: Spontaneous
  Country: US (occurrence: None)
  Receive Date: 20131204
  Receipt Date: 20131204
  Transmission Date: 20140711
  Serious: Yes (Hospitalization)
  Sender: FDA-Public Use
  Company Number: None

PATIENT
  Age: 59 Year
  Sex: Female

DRUGS (1)
  1. TYSABRI [Suspect]
     Indication: MULTIPLE SCLEROSIS
     Dosage: 300 MH INFUSION EVERY 4 WEEKS, INTRAVENOUS (NOT OTHERWISE SPECIFIED)042
     Route: 042

REACTIONS (2)
  - Catatonia [None]
  - Infusion related reaction [None]
